FAERS Safety Report 24673706 (Version 1)
Quarter: 2024Q4

REPORT INFORMATION
  Report Type: Spontaneous
  Country: US (occurrence: US)
  Receive Date: 20241128
  Receipt Date: 20241128
  Transmission Date: 20250115
  Serious: Yes (Hospitalization)
  Sender: ARGENX BVBA
  Company Number: US-ARGENX-2024-ARGX-US010156

PATIENT

DRUGS (2)
  1. VYVGART HYTRULO [Suspect]
     Active Substance: EFGARTIGIMOD ALFA\HYALURONIDASE-QVFC
     Indication: Chronic inflammatory demyelinating polyradiculoneuropathy
     Dosage: UNK
     Route: 058
  2. HUMAN IMMUNOGLOBULIN G [Concomitant]
     Active Substance: HUMAN IMMUNOGLOBULIN G
     Indication: Chronic inflammatory demyelinating polyradiculoneuropathy
     Dosage: UNK
     Route: 042

REACTIONS (4)
  - Tibia fracture [Unknown]
  - Fall [Unknown]
  - Chronic inflammatory demyelinating polyradiculoneuropathy [Recovering/Resolving]
  - Loss of personal independence in daily activities [Unknown]
